FAERS Safety Report 7101627-9 (Version None)
Quarter: 2010Q4

REPORT INFORMATION
  Report Type: 
  Country: None (occurrence: None)
  Receive Date: 20101115
  Receipt Date: 20101101
  Transmission Date: 20110411
  Serious: Yes (Other)
  Sender: FDA-Public Use
  Company Number: PHHY2010BE74167

PATIENT
  Sex: Male
  Weight: 104 kg

DRUGS (7)
  1. ZOMETA [Suspect]
     Indication: METASTASES TO BONE
     Dosage: 4 MG ONCE MONTHLY
     Route: 042
     Dates: start: 20081201, end: 20101015
  2. INDOCIN [Concomitant]
     Dosage: 50MG/ONCE A DAY
     Dates: start: 20090801
  3. METFORMAX [Concomitant]
     Dosage: 850 MG, QD
     Route: 048
  4. CRESTOR [Concomitant]
     Dosage: 10 MG DAILY
     Route: 048
  5. VASEXTEN [Concomitant]
     Dosage: 20 MG DAILY
     Route: 048
  6. EZETROL [Concomitant]
     Dosage: 10 MG DAILY
     Route: 048
  7. APROVEL [Concomitant]
     Dosage: 300 MG, QD
     Route: 048

REACTIONS (1)
  - OSTEONECROSIS OF JAW [None]
